FAERS Safety Report 6897431-7 (Version None)
Quarter: 2010Q3

REPORT INFORMATION
  Report Type: 
  Country: None (occurrence: None)
  Receive Date: 20100729
  Receipt Date: 20100714
  Transmission Date: 20110219
  Serious: Yes (Congenital Anomaly)
  Sender: FDA-Public Use
  Company Number: 2006RR-04880

PATIENT

DRUGS (5)
  1. CODEINE PHOSPHATE AND ACETAMINOPHEN [Suspect]
     Indication: DRUG EXPOSURE DURING PREGNANCY
     Dosage: TRANSPLACENTAL
     Route: 064
  2. TRAMADOL HCL [Suspect]
     Indication: DRUG EXPOSURE DURING PREGNANCY
     Dosage: TRANSPLACENTAL
     Route: 064
  3. CO-DYDRAMOL ORAL (PARACETAMOL, DIHYDROCODEINE TARTRATE) [Suspect]
     Indication: DRUG EXPOSURE DURING PREGNANCY
  4. IMIPRAMINE [Suspect]
     Indication: DRUG EXPOSURE DURING PREGNANCY
  5. ORTHO GYNE- T INTRAUTERINE COPPER CONTRACEPTIVE DEVICE (COPPER) [Concomitant]

REACTIONS (3)
  - CONGENITAL ANOMALY [None]
  - CONGENITAL MULTIPLEX ARTHROGRYPOSIS [None]
  - MATERNAL DRUGS AFFECTING FOETUS [None]
